FAERS Safety Report 25728505 (Version 1)
Quarter: 2025Q3

REPORT INFORMATION
  Report Type: Report from Study
  Country: CA (occurrence: CA)
  Receive Date: 20250826
  Receipt Date: 20250826
  Transmission Date: 20251021
  Serious: Yes (Hospitalization)
  Sender: ABBVIE
  Company Number: CA-ABBVIE-6429322

PATIENT
  Age: 69 Year
  Sex: Female

DRUGS (1)
  1. SKYRIZI [Suspect]
     Active Substance: RISANKIZUMAB-RZAA
     Indication: Psoriasis
     Route: 058

REACTIONS (7)
  - Oropharyngeal pain [Unknown]
  - Cough [Unknown]
  - Dysuria [Unknown]
  - Blood urine present [Unknown]
  - Delirium [Unknown]
  - Hyperammonaemia [Unknown]
  - Constipation [Unknown]

NARRATIVE: CASE EVENT DATE: 20250817
